FAERS Safety Report 15774357 (Version 1)
Quarter: 2018Q4

REPORT INFORMATION
  Report Type: Report from Study
  Country: IT (occurrence: IT)
  Receive Date: 20181229
  Receipt Date: 20181229
  Transmission Date: 20190205
  Serious: Yes (Life-Threatening, Hospitalization, Other)
  Sender: FDA-Public Use
  Company Number: IT-INDICUS PHARMA-000559

PATIENT
  Age: 82 Year
  Sex: Female

DRUGS (11)
  1. CANRENOIC ACID [Concomitant]
     Active Substance: CANRENOIC ACID
  2. ENOXAPARIN [Concomitant]
     Active Substance: ENOXAPARIN
  3. METFORMIN [Suspect]
     Active Substance: METFORMIN HYDROCHLORIDE
     Indication: TYPE 2 DIABETES MELLITUS
     Dosage: 850 MG T.I.D
  4. ACETYLSALICYLIC ACID [Concomitant]
     Active Substance: ASPIRIN
  5. ATORVASTATIN [Concomitant]
     Active Substance: ATORVASTATIN
  6. AMLODIPINE [Concomitant]
     Active Substance: AMLODIPINE BESYLATE
  7. CLOPIDOGREL [Concomitant]
     Active Substance: CLOPIDOGREL BISULFATE
  8. LANSOPRAZOLE. [Concomitant]
     Active Substance: LANSOPRAZOLE
  9. FUROSEMIDE. [Concomitant]
     Active Substance: FUROSEMIDE
  10. ZOFENOPRIL/ZOFENOPRIL CALCIUM [Concomitant]
  11. METOPROLOL. [Concomitant]
     Active Substance: METOPROLOL

REACTIONS (5)
  - Urinary tract infection [Unknown]
  - Acute kidney injury [Unknown]
  - Lactic acidosis [Unknown]
  - Pseudomonas infection [Unknown]
  - Escherichia infection [Unknown]
